FAERS Safety Report 17879156 (Version 1)
Quarter: 2020Q2

REPORT INFORMATION
  Report Type: Spontaneous
  Country: US (occurrence: US)
  Receive Date: 20200609
  Receipt Date: 20200609
  Transmission Date: 20200714
  Serious: Yes (Other)
  Sender: FDA-Public Use
  Company Number: None

PATIENT
  Age: 38 Year
  Sex: Female
  Weight: 91.35 kg

DRUGS (14)
  1. DEXTROMETHORPHAN [Concomitant]
     Active Substance: DEXTROMETHORPHAN
     Dates: start: 20200604, end: 20200609
  2. CEFTRIAXONE. [Concomitant]
     Active Substance: CEFTRIAXONE
     Dates: start: 20200603, end: 20200609
  3. ENOXAPARIN [Concomitant]
     Active Substance: ENOXAPARIN
     Dates: start: 20200605, end: 20200609
  4. NIFEDIPINE. [Concomitant]
     Active Substance: NIFEDIPINE
     Dates: start: 20200604, end: 20200604
  5. GUAIFENSIN AC [Concomitant]
     Dates: start: 20200603, end: 20200605
  6. DOXYCYCLINE. [Concomitant]
     Active Substance: DOXYCYCLINE
     Dates: start: 20200603, end: 20200609
  7. LABETOLOL [Concomitant]
     Active Substance: LABETALOL HYDROCHLORIDE
     Dates: start: 20200604, end: 20200609
  8. NORCO [Concomitant]
     Active Substance: ACETAMINOPHEN\HYDROCODONE BITARTRATE
     Dates: start: 20200604, end: 20200604
  9. HEPARIN SODIUM, PORCINE [Concomitant]
     Active Substance: HEPARIN SODIUM
     Dates: start: 20200604, end: 20200605
  10. ONDANSETRON [Concomitant]
     Active Substance: ONDANSETRON
     Dates: start: 20200604, end: 20200605
  11. REMDESIVIR. [Suspect]
     Active Substance: REMDESIVIR
     Indication: COVID-19 PNEUMONIA
     Route: 041
     Dates: start: 20200604, end: 20200607
  12. BENZONATATE (TESSALON PERLES [Concomitant]
     Dates: start: 20200604, end: 20200609
  13. ACETAMINOPHEN. [Concomitant]
     Active Substance: ACETAMINOPHEN
     Dates: start: 20200603, end: 20200608
  14. CHLORHEXIDINE ORAL [Concomitant]
     Dates: start: 20200604, end: 20200609

REACTIONS (4)
  - Suicidal ideation [None]
  - Abnormal dreams [None]
  - Hallucination, auditory [None]
  - Hallucination [None]

NARRATIVE: CASE EVENT DATE: 20200607
